FAERS Safety Report 6012444-5 (Version None)
Quarter: 2008Q4

REPORT INFORMATION
  Report Type: 
  Country: None (occurrence: None)
  Receive Date: 20081218
  Receipt Date: 20081209
  Transmission Date: 20090506
  Serious: Yes (Hospitalization, Other)
  Sender: FDA-Public Use
  Company Number: US-ELI_LILLY_AND_COMPANY-US200810007648

PATIENT
  Sex: Female

DRUGS (2)
  1. FORTEO [Suspect]
     Dosage: UNK, UNK
     Dates: start: 20080101, end: 20080902
  2. FORTEO [Suspect]
     Dates: start: 20080901

REACTIONS (6)
  - ANAEMIA [None]
  - ASTHENIA [None]
  - BACK PAIN [None]
  - IRON DEFICIENCY [None]
  - MOBILITY DECREASED [None]
  - RASH MACULAR [None]
